FAERS Safety Report 25043813 (Version 1)
Quarter: 2025Q1

REPORT INFORMATION
  Report Type: Spontaneous
  Country: US (occurrence: US)
  Receive Date: 20250306
  Receipt Date: 20250306
  Transmission Date: 20250409
  Serious: No
  Sender: ROCHE
  Company Number: US-ROCHE-10000220811

PATIENT
  Sex: Female

DRUGS (1)
  1. ACTEMRA [Suspect]
     Active Substance: TOCILIZUMAB
     Indication: Arthralgia
     Dosage: ROUTE: UNDER THE SKIN, ?DOSE: 162 MG/ 0.9 M.
     Route: 058
     Dates: start: 202501

REACTIONS (4)
  - Condition aggravated [Unknown]
  - Pyrexia [Unknown]
  - Lymphadenopathy [Unknown]
  - Oropharyngeal pain [Unknown]
